FAERS Safety Report 11343093 (Version 1)
Quarter: 2015Q3

REPORT INFORMATION
  Report Type: Spontaneous
  Country: IT (occurrence: IT)
  Receive Date: 20150805
  Receipt Date: 20150805
  Transmission Date: 20151125
  Serious: Yes (Hospitalization)
  Sender: FDA-Public Use
  Company Number: IT-AMGEN-ITASP2015078435

PATIENT
  Age: 67 Year
  Sex: Male

DRUGS (9)
  1. METFORMIN [Concomitant]
     Active Substance: METFORMIN HYDROCHLORIDE
     Dosage: UNK
  2. ACETYLSALICYLIC ACID [Concomitant]
     Active Substance: ASPIRIN
     Dosage: UNK
  3. BISOPROLOL HEMIFUMARATE [Concomitant]
     Active Substance: BISOPROLOL FUMARATE
     Dosage: UNK
  4. ENBREL [Suspect]
     Active Substance: ETANERCEPT
     Indication: PRODUCT USED FOR UNKNOWN INDICATION
     Dosage: 50 MG, CYCLIC
     Route: 058
     Dates: start: 20100520, end: 20150508
  5. BIFRIL [Concomitant]
     Active Substance: ZOFENOPRIL
     Dosage: UNK
  6. TOTALIP [Concomitant]
     Active Substance: ATORVASTATIN
     Dosage: UNK
  7. FOLINA                             /00024201/ [Concomitant]
     Active Substance: FOLIC ACID
     Dosage: UNK
  8. PANTORC [Concomitant]
     Active Substance: PANTOPRAZOLE SODIUM
     Dosage: UNK
  9. DIBASE [Concomitant]
     Active Substance: CHOLECALCIFEROL
     Dosage: UNK

REACTIONS (2)
  - Intermittent claudication [Recovered/Resolved with Sequelae]
  - Coronary artery stenosis [Recovered/Resolved with Sequelae]

NARRATIVE: CASE EVENT DATE: 20150505
